FAERS Safety Report 6805212-5 (Version None)
Quarter: 2010Q2

REPORT INFORMATION
  Report Type: 
  Country: None (occurrence: None)
  Receive Date: 20100628
  Receipt Date: 20071126
  Transmission Date: 20101027
  Serious: No
  Sender: FDA-Public Use
  Company Number: US-PFIZER INC-2007041394

PATIENT
  Age: 77 Year
  Sex: Female

DRUGS (4)
  1. PROCARDIA XL [Suspect]
  2. HERBAL NOS/MINERALS NOS [Concomitant]
  3. PARACETAMOL/ CAFFEINE [Concomitant]
  4. PERCOCET [Concomitant]
     Indication: PAIN

REACTIONS (4)
  - MALAISE [None]
  - MUSCLE MASS [None]
  - OEDEMA [None]
  - PAIN [None]
